FAERS Safety Report 4580939-7 (Version None)
Quarter: 2005Q1

REPORT INFORMATION
  Report Type: 
  Country: None (occurrence: None)
  Receive Date: 20050214
  Receipt Date: 20040629
  Transmission Date: 20050727
  Serious: Yes (Other)
  Sender: FDA-Public Use
  Company Number: US-GLAXOSMITHKLINE-A0516459A

PATIENT
  Sex: Female

DRUGS (3)
  1. LAMICTAL [Suspect]
     Dosage: 12.5MG PER DAY
     Route: 048
     Dates: start: 20040623
  2. ADDERALL 10 [Concomitant]
  3. CELEXA [Concomitant]

REACTIONS (3)
  - LYMPHADENOPATHY [None]
  - RASH [None]
  - STEVENS-JOHNSON SYNDROME [None]
